FAERS Safety Report 8577041-6 (Version None)
Quarter: 2012Q3

REPORT INFORMATION
  Report Type: 
  Country: None (occurrence: None)
  Receive Date: 20120807
  Receipt Date: 20120801
  Transmission Date: 20120928
  Serious: Yes (Other)
  Sender: FDA-Public Use
  Company Number: VN-BAXTER-2012BAX013496

PATIENT
  Age: 14 Year
  Sex: Male
  Weight: 36 kg

DRUGS (1)
  1. DIANEAL [Suspect]
     Route: 033
     Dates: start: 20100402, end: 20120730

REACTIONS (3)
  - PERITONITIS BACTERIAL [None]
  - PYREXIA [None]
  - INCISION SITE INFECTION [None]
